FAERS Safety Report 16411018 (Version 1)
Quarter: 2019Q3

REPORT INFORMATION
  Report Type: Spontaneous
  Country: US (occurrence: US)
  Receive Date: 20190609
  Receipt Date: 20190609
  Transmission Date: 20191004
  Serious: No
  Sender: FDA-Public Use
  Company Number: None

PATIENT
  Age: 48 Year
  Sex: Male
  Weight: 213 kg

DRUGS (5)
  1. AMLODIPINE 10 MG [Concomitant]
     Active Substance: AMLODIPINE BESYLATE
  2. METOPROLOL SUCCINATE 100 MG [Concomitant]
     Active Substance: METOPROLOL SUCCINATE
  3. LISINOPRIL. [Suspect]
     Active Substance: LISINOPRIL
     Indication: HYPERTENSION
     Route: 048
  4. ROSUVASTATIN 40 MG [Concomitant]
     Active Substance: ROSUVASTATIN
  5. CHLORTHALIDONE 25 MG [Concomitant]
     Active Substance: CHLORTHALIDONE

REACTIONS (1)
  - Cough [None]

NARRATIVE: CASE EVENT DATE: 20190602
